FAERS Safety Report 26174318 (Version 1)
Quarter: 2025Q4

REPORT INFORMATION
  Report Type: Spontaneous
  Country: EU (occurrence: EU)
  Receive Date: 20251218
  Receipt Date: 20251218
  Transmission Date: 20260117
  Serious: Yes (Hospitalization)
  Sender: MERCK SHARP & DOHME LLC
  Company Number: EU-BNTAG-011489

PATIENT
  Age: 81 Year
  Sex: Male
  Weight: 75 kg

DRUGS (7)
  1. PEMBROLIZUMAB [Suspect]
     Active Substance: PEMBROLIZUMAB
     Indication: Squamous cell carcinoma of head and neck
     Dosage: EVERY 3 WEEKS; 200 MG, TOTAL; EVERY 3 WEEKS
     Route: 042
     Dates: start: 20250206, end: 20250728
  2. PEMBROLIZUMAB [Suspect]
     Active Substance: PEMBROLIZUMAB
     Indication: Squamous cell carcinoma of head and neck
     Dosage: EVERY 3 WEEKS; 200 MG, TOTAL; EVERY 3 WEEKS
     Route: 042
     Dates: start: 20250728, end: 20250728
  3. PEMBROLIZUMAB [Suspect]
     Active Substance: PEMBROLIZUMAB
     Indication: Squamous cell carcinoma of head and neck
     Dosage: EVERY 3 WEEKS; 200 MG, TOTAL; EVERY 3 WEEKS
     Route: 042
     Dates: start: 20251014
  4. ALFABAX [Concomitant]
  5. FINASTER [Concomitant]
  6. LACIDIPINE [Concomitant]
     Active Substance: LACIDIPINE
  7. Solitombo [Concomitant]

REACTIONS (1)
  - Renal failure [Recovering/Resolving]

NARRATIVE: CASE EVENT DATE: 20250818
